FAERS Safety Report 15087936 (Version 1)
Quarter: 2018Q2

REPORT INFORMATION
  Report Type: Spontaneous
  Country: FR (occurrence: FR)
  Receive Date: 20180629
  Receipt Date: 20180629
  Transmission Date: 20180711
  Serious: Yes (Hospitalization)
  Sender: FDA-Public Use
  Company Number: FR-TEVA-2018-FR-913043

PATIENT
  Age: 94 Year
  Sex: Female
  Weight: 53.6 kg

DRUGS (11)
  1. ELIQUIS [Suspect]
     Active Substance: APIXABAN
     Indication: ATRIAL FIBRILLATION
     Dosage: 2 DOSAGE FORMS DAILY;
     Route: 048
     Dates: end: 20180514
  2. OXYGENE [Concomitant]
     Active Substance: OXYGEN
     Route: 065
  3. DAFLON [Concomitant]
     Route: 065
  4. BISOPROLOL (FUMARATE ACIDE DE) [Suspect]
     Active Substance: BISOPROLOL FUMARATE
     Indication: CARDIAC FAILURE
     Dosage: 1.25 MILLIGRAM DAILY;
     Route: 048
  5. LERCANIDIPINE (CHLORHYDRATE DE) [Suspect]
     Active Substance: LERCANIDIPINE HYDROCHLORIDE
     Indication: HYPERTENSION
     Dosage: 10 MILLIGRAM DAILY;
     Route: 048
  6. THERALENE 5 MG, COMPRIM? PELLICUL? S?CABLE [Suspect]
     Active Substance: TRIMEPRAZINE TARTRATE
     Indication: INSOMNIA
     Dosage: .5 DOSAGE FORMS DAILY;
     Route: 048
     Dates: end: 20180512
  7. PARACETAMOL [Concomitant]
     Active Substance: ACETAMINOPHEN
     Route: 065
  8. MACROGOL 4000 [Concomitant]
     Active Substance: POLYETHYLENE GLYCOL 4000
     Route: 065
  9. SERESTA 10 MG, COMPRIM? [Suspect]
     Active Substance: OXAZEPAM
     Indication: ANXIETY
     Dosage: 1 DOSAGE FORMS DAILY;
     Route: 048
  10. IBUFETUM 5 %, GEL [Concomitant]
     Route: 065
  11. FUROSEMIDE. [Suspect]
     Active Substance: FUROSEMIDE
     Indication: HYPERTENSION
     Dosage: 40 MILLIGRAM DAILY;
     Route: 048

REACTIONS (2)
  - Traumatic haematoma [Not Recovered/Not Resolved]
  - Fall [Recovered/Resolved]

NARRATIVE: CASE EVENT DATE: 20180512
